FAERS Safety Report 8807379 (Version 2)
Quarter: 2012Q4

REPORT INFORMATION
  Report Type: 
  Country: PH (occurrence: PH)
  Receive Date: 20120925
  Receipt Date: 20121008
  Transmission Date: 20130627
  Serious: Yes (Death, Hospitalization, Other)
  Sender: FDA-Public Use
  Company Number: PHHO2004PH01463

PATIENT
  Sex: Male

DRUGS (1)
  1. GLIVEC [Suspect]
     Indication: CHRONIC MYELOID LEUKAEMIA
     Route: 048
     Dates: start: 20031105

REACTIONS (8)
  - Chronic myeloid leukaemia [Fatal]
  - Haematoma [Fatal]
  - Subarachnoid haemorrhage [Fatal]
  - Fall [Unknown]
  - Thrombosis [Unknown]
  - Anaemia [Unknown]
  - Thrombocytopenia [Unknown]
  - Arthralgia [Unknown]
